FAERS Safety Report 8159415-0 (Version None)
Quarter: 2012Q1

REPORT INFORMATION
  Report Type: 
  Country: None (occurrence: None)
  Receive Date: 20120223
  Receipt Date: 20120220
  Transmission Date: 20120608
  Serious: Yes (Other)
  Sender: FDA-Public Use
  Company Number: US-BAYER-2011-124505

PATIENT
  Age: 56 Year
  Sex: Female

DRUGS (2)
  1. NEXAVAR [Suspect]
     Indication: HEPATIC NEOPLASM MALIGNANT
     Dosage: 200 MG, BID
     Route: 048
     Dates: start: 20111219, end: 20120201
  2. NEXAVAR [Suspect]
     Dosage: 200 MG, QOD
     Dates: end: 20120201

REACTIONS (6)
  - FATIGUE [None]
  - PAIN OF SKIN [None]
  - FEELING ABNORMAL [None]
  - TUMOUR PAIN [None]
  - TUMOUR MARKER INCREASED [None]
  - BLISTER [None]
